FAERS Safety Report 4808904-2 (Version None)
Quarter: 2005Q4

REPORT INFORMATION
  Report Type: 
  Country: None (occurrence: None)
  Receive Date: 20051021
  Receipt Date: 20030408
  Transmission Date: 20060501
  Serious: No
  Sender: FDA-Public Use
  Company Number: DE_030411075

PATIENT
  Sex: Male

DRUGS (3)
  1. ZYPREXA [Suspect]
     Indication: SCHIZOPHRENIA
     Dosage: 15 MG/DAY
     Dates: start: 19980101
  2. GLIBENCLAMIDE [Concomitant]
  3. ALLOPURINOL [Concomitant]

REACTIONS (2)
  - HAEMOGLOBIN INCREASED [None]
  - RED BLOOD CELL COUNT INCREASED [None]
